FAERS Safety Report 9869779 (Version 1)
Quarter: 2014Q1

REPORT INFORMATION
  Report Type: Spontaneous
  Country: US (occurrence: US)
  Receive Date: 20140205
  Receipt Date: 20140205
  Transmission Date: 20141002
  Serious: No
  Sender: FDA-Public Use
  Company Number: US-GLAXOSMITHKLINE-A1037339A

PATIENT
  Age: 86 Year
  Sex: Female

DRUGS (8)
  1. ARIXTRA [Suspect]
     Indication: THROMBOSIS
     Dosage: 7.5MG PER DAY
     Route: 058
     Dates: start: 20130609
  2. ADVAIR [Concomitant]
  3. GLIPIZIDE [Concomitant]
  4. LOSARTAN [Concomitant]
  5. NASONEX [Concomitant]
  6. PREDNISONE [Concomitant]
  7. SINGULAIR [Concomitant]
  8. SYNTHROID [Concomitant]

REACTIONS (1)
  - Epistaxis [Not Recovered/Not Resolved]
